FAERS Safety Report 9933663 (Version 1)
Quarter: 2014Q1

REPORT INFORMATION
  Report Type: Report from Study
  Country: US (occurrence: US)
  Receive Date: 20140228
  Receipt Date: 20140228
  Transmission Date: 20141002
  Serious: No
  Sender: FDA-Public Use
  Company Number: US-MYLANLABS-2013S1028841

PATIENT
  Age: 19 Year
  Sex: Male
  Weight: 89.36 kg

DRUGS (4)
  1. AMNESTEEM CAPSULES [Suspect]
     Indication: ACNE
     Route: 048
     Dates: start: 20131006, end: 20131219
  2. PROZAC [Concomitant]
  3. LAMICTAL [Concomitant]
  4. MELATONIN [Concomitant]

REACTIONS (1)
  - Blood triglycerides increased [Not Recovered/Not Resolved]
